FAERS Safety Report 9173416 (Version 1)
Quarter: 2013Q1

REPORT INFORMATION
  Report Type: Spontaneous
  Country: US (occurrence: None)
  Receive Date: 20130318
  Receipt Date: 20130318
  Transmission Date: 20140127
  Serious: Yes (Other)
  Sender: FDA-Public Use
  Company Number: None

PATIENT
  Age: 58 Year
  Sex: Female
  Weight: 73.48 kg

DRUGS (1)
  1. ABILIFY, 10 MG, OTSUKA [Suspect]
     Indication: MAJOR DEPRESSION
     Route: 048
     Dates: start: 20130305, end: 20130315

REACTIONS (3)
  - Sensation of heaviness [None]
  - Restless legs syndrome [None]
  - Muscular weakness [None]
